FAERS Safety Report 8577815 (Version 3)
Quarter: 2012Q4

REPORT INFORMATION
  Report Type: 
  Country: DE (occurrence: IT)
  Receive Date: 20120524
  Receipt Date: 20120913
  Transmission Date: 20130627
  Serious: Yes (Hospitalization)
  Sender: FDA-Public Use
  Company Number: IT-BRISTOL-MYERS SQUIBB COMPANY-16613416

PATIENT
  Age: 72 Year
  Sex: Female

DRUGS (2)
  1. ERBITUX SOLN FOR INF [Suspect]
     Indication: COLORECTAL CANCER
     Route: 042
     Dates: start: 20100714, end: 20100714
  2. IRINOTECAN [Concomitant]
     Indication: COLORECTAL CANCER
     Dosage: infusion
     Route: 042
     Dates: start: 20100714, end: 20100714

REACTIONS (2)
  - Febrile neutropenia [Recovered/Resolved]
  - Thrombocytopenia [Recovered/Resolved]
